FAERS Safety Report 15552664 (Version 1)
Quarter: 2018Q4

REPORT INFORMATION
  Report Type: Spontaneous
  Country: US (occurrence: US)
  Receive Date: 20181025
  Receipt Date: 20181025
  Transmission Date: 20190205
  Serious: Yes (Hospitalization)
  Sender: FDA-Public Use
  Company Number: US-RADIUS HEALTH, INC.-2018US002665

PATIENT
  Age: 69 Year
  Sex: Female

DRUGS (1)
  1. TYMLOS [Suspect]
     Active Substance: ABALOPARATIDE
     Indication: OSTEOPOROSIS POSTMENOPAUSAL
     Dosage: 80 MCG DAILY
     Route: 058
     Dates: start: 20180910

REACTIONS (3)
  - Dyspnoea [Not Recovered/Not Resolved]
  - Heart rate increased [Not Recovered/Not Resolved]
  - Chest pain [Not Recovered/Not Resolved]

NARRATIVE: CASE EVENT DATE: 20181022
